FAERS Safety Report 18440320 (Version 1)
Quarter: 2020Q4

REPORT INFORMATION
  Report Type: Spontaneous
  Country: BG (occurrence: BG)
  Receive Date: 20201029
  Receipt Date: 20201029
  Transmission Date: 20210114
  Serious: Yes (Other)
  Sender: FDA-Public Use
  Company Number: BG-BAYER-2020-226285

PATIENT
  Age: 71 Year
  Sex: Male

DRUGS (1)
  1. STIVARGA [Suspect]
     Active Substance: REGORAFENIB
     Indication: COLORECTAL CANCER METASTATIC
     Dosage: 160 MG DAILY FOR 1-21 DAYS
     Dates: start: 20200130, end: 20200903

REACTIONS (2)
  - Metastases to lung [None]
  - Colorectal cancer metastatic [None]

NARRATIVE: CASE EVENT DATE: 20200909
